FAERS Safety Report 25766250 (Version 1)
Quarter: 2025Q3

REPORT INFORMATION
  Report Type: Spontaneous
  Country: CN (occurrence: CN)
  Receive Date: 20250905
  Receipt Date: 20250905
  Transmission Date: 20251020
  Serious: No
  Sender: ANI
  Company Number: None

PATIENT
  Age: 17 Year
  Sex: Female
  Weight: 50 kg

DRUGS (3)
  1. FLUVOXAMINE MALEATE [Suspect]
     Active Substance: FLUVOXAMINE MALEATE
     Indication: Anxiety
     Route: 048
     Dates: start: 20250810, end: 20250811
  2. Shiyiwei Weiming Jiaonang [Concomitant]
     Indication: Anxiety
     Route: 048
     Dates: start: 20250810, end: 20250819
  3. FLUVOXAMINE MALEATE [Suspect]
     Active Substance: FLUVOXAMINE MALEATE
     Indication: Anxiety
     Route: 048
     Dates: start: 20250812, end: 20250814

REACTIONS (2)
  - Dizziness [Recovered/Resolved]
  - Nausea [Recovered/Resolved]

NARRATIVE: CASE EVENT DATE: 20250814
